FAERS Safety Report 8499294-5 (Version None)
Quarter: 2012Q3

REPORT INFORMATION
  Report Type: 
  Country: None (occurrence: None)
  Receive Date: 20120710
  Receipt Date: 20120705
  Transmission Date: 20120928
  Serious: Yes (Life-Threatening, Other)
  Sender: FDA-Public Use
  Company Number: PHHY2012JP021038

PATIENT
  Sex: Male
  Weight: 63 kg

DRUGS (3)
  1. IMATINIB MESYLATE [Suspect]
     Dosage: 100 MG, DAILY
     Route: 048
     Dates: start: 20120328
  2. IMATINIB MESYLATE [Suspect]
     Dosage: 200 MG, DAILY
     Route: 048
  3. IMATINIB MESYLATE [Suspect]
     Indication: GASTROINTESTINAL STROMAL TUMOUR
     Dosage: 400 MG DAILY
     Route: 048
     Dates: start: 20120305, end: 20120307

REACTIONS (10)
  - SHOCK [None]
  - HEART RATE DECREASED [None]
  - BLOOD PRESSURE IMMEASURABLE [None]
  - NEOPLASM PROGRESSION [None]
  - BLOOD BILIRUBIN INCREASED [None]
  - CHEST DISCOMFORT [None]
  - NAUSEA [None]
  - NEOPLASM MALIGNANT [None]
  - LIVER DISORDER [None]
  - ARRHYTHMIA [None]
